FAERS Safety Report 6194109-2 (Version None)
Quarter: 2009Q2

REPORT INFORMATION
  Report Type: 
  Country: None (occurrence: None)
  Receive Date: 20090518
  Receipt Date: 20090510
  Transmission Date: 20091009
  Serious: Yes (Disabling, Other)
  Sender: FDA-Public Use
  Company Number: PHHY2009BD18202

PATIENT
  Age: 47 Year
  Sex: Female
  Weight: 60 kg

DRUGS (5)
  1. ACLASTA [Suspect]
     Indication: OSTEOPOROSIS POSTMENOPAUSAL
     Dosage: 5 MG, ONCE/SINGLE
     Route: 051
     Dates: start: 20090506
  2. OMEPRAZOLE [Concomitant]
  3. CALCIUM WITH VITAMIN D [Concomitant]
     Dosage: UNK
  4. METFORMIN HCL [Concomitant]
  5. GLIMEPIRIDE [Concomitant]

REACTIONS (4)
  - ARTHRALGIA [None]
  - MOVEMENT DISORDER [None]
  - RASH [None]
  - SWELLING [None]
